FAERS Safety Report 23336776 (Version 1)
Quarter: 2023Q4

REPORT INFORMATION
  Report Type: Spontaneous
  Country: US (occurrence: None)
  Receive Date: 20231226
  Receipt Date: 20231226
  Transmission Date: 20240109
  Serious: No
  Sender: FDA-Public Use
  Company Number: US-Unichem Pharmaceuticals (USA) Inc-UCM202212-001300

PATIENT
  Age: 47 Year
  Sex: Male
  Weight: 86.2 kg

DRUGS (3)
  1. TIZANIDINE [Suspect]
     Active Substance: TIZANIDINE
     Indication: Hereditary spastic paraplegia
  2. TIZANIDINE [Suspect]
     Active Substance: TIZANIDINE
  3. TIZANIDINE [Suspect]
     Active Substance: TIZANIDINE

REACTIONS (1)
  - Therapeutic product effect decreased [Unknown]
